FAERS Safety Report 25471504 (Version 1)
Quarter: 2025Q2

REPORT INFORMATION
  Report Type: Spontaneous
  Country: US (occurrence: US)
  Receive Date: 20250624
  Receipt Date: 20250624
  Transmission Date: 20250717
  Serious: No
  Sender: GLENMARK
  Company Number: US-GLENMARK PHARMACEUTICALS-2025GMK099025

PATIENT

DRUGS (3)
  1. MUPIROCIN [Suspect]
     Active Substance: MUPIROCIN
     Indication: Infection
     Route: 061
     Dates: start: 2020
  2. MUPIROCIN [Suspect]
     Active Substance: MUPIROCIN
     Route: 061
     Dates: start: 2023, end: 2023
  3. MUPIROCIN [Suspect]
     Active Substance: MUPIROCIN
     Route: 061

REACTIONS (3)
  - Expired product administered [Unknown]
  - Product use in unapproved indication [Unknown]
  - Recalled product administered [Unknown]

NARRATIVE: CASE EVENT DATE: 20230101
